FAERS Safety Report 11130487 (Version 1)
Quarter: 2015Q2

REPORT INFORMATION
  Report Type: Spontaneous
  Country: GB (occurrence: GB)
  Receive Date: 20150522
  Receipt Date: 20150522
  Transmission Date: 20150821
  Serious: Yes (Hospitalization)
  Sender: FDA-Public Use
  Company Number: GB-ACCORD-030783

PATIENT
  Age: 77 Year
  Sex: Male

DRUGS (4)
  1. BISOPROLOL [Concomitant]
     Active Substance: BISOPROLOL
     Indication: ATRIAL FIBRILLATION
     Dosage: LONG-TERM, CONTINUED
     Route: 048
  2. WARFARIN [Concomitant]
     Active Substance: WARFARIN
     Indication: ATRIAL FIBRILLATION
     Dosage: LONG-TERM
     Route: 048
  3. RAMIPRIL. [Suspect]
     Active Substance: RAMIPRIL
     Indication: HYPERTENSION
     Route: 048
  4. SIMVASTATIN. [Concomitant]
     Active Substance: SIMVASTATIN
     Indication: BLOOD CHOLESTEROL INCREASED
     Dosage: LONG-TERM, CONTINUED
     Route: 048

REACTIONS (10)
  - Tongue oedema [Not Recovered/Not Resolved]
  - Stridor [Not Recovered/Not Resolved]
  - Hypersensitivity [Unknown]
  - Oxygen saturation decreased [Not Recovered/Not Resolved]
  - Cough [Unknown]
  - Epiglottitis [Not Recovered/Not Resolved]
  - Cyanosis [Not Recovered/Not Resolved]
  - Oropharyngeal pain [Unknown]
  - Upper airway obstruction [Unknown]
  - Angioedema [Unknown]

NARRATIVE: CASE EVENT DATE: 20150426
